FAERS Safety Report 7083216-8 (Version None)
Quarter: 2010Q4

REPORT INFORMATION
  Report Type: 
  Country: None (occurrence: None)
  Receive Date: 20101104
  Receipt Date: 20090225
  Transmission Date: 20110411
  Serious: No
  Sender: FDA-Public Use
  Company Number: US-KINGPHARMUSA00001-K200900201

PATIENT
  Sex: Female

DRUGS (5)
  1. FLECTOR [Suspect]
     Indication: BACK PAIN
     Dosage: 1 PATCH, BID
     Route: 061
  2. ALEVE (CAPLET) [Concomitant]
     Dosage: UNK
  3. DARVOCET [Concomitant]
  4. TYLENOL (CAPLET) [Concomitant]
  5. ADVIL LIQUI-GELS [Concomitant]

REACTIONS (2)
  - PAIN [None]
  - THERAPEUTIC RESPONSE DECREASED [None]
